FAERS Safety Report 6555872-1 (Version None)
Quarter: 2010Q1

REPORT INFORMATION
  Report Type: 
  Country: None (occurrence: None)
  Receive Date: 20100128
  Receipt Date: 20100126
  Transmission Date: 20100710
  Serious: Yes (Other)
  Sender: FDA-Public Use
  Company Number: FR-WYE-G04973009

PATIENT
  Age: 50 Year
  Sex: Male
  Weight: 82 kg

DRUGS (1)
  1. ADVIL [Suspect]
     Indication: ARTHRALGIA
     Route: 048
     Dates: start: 20091001, end: 20091101

REACTIONS (7)
  - ECZEMA [None]
  - GAMMA-GLUTAMYLTRANSFERASE INCREASED [None]
  - PROTEIN URINE PRESENT [None]
  - RENAL FAILURE ACUTE [None]
  - SKIN PLAQUE [None]
  - SWELLING [None]
  - TOXIC SKIN ERUPTION [None]
